FAERS Safety Report 6539782-1 (Version None)
Quarter: 2010Q1

REPORT INFORMATION
  Report Type: 
  Country: None (occurrence: None)
  Receive Date: 20100115
  Receipt Date: 20100106
  Transmission Date: 20100710
  Serious: Yes (Hospitalization)
  Sender: FDA-Public Use
  Company Number: DE-PFIZER INC-2009310046

PATIENT
  Age: 79 Year
  Sex: Female
  Weight: 54 kg

DRUGS (3)
  1. CELEBREX [Suspect]
     Indication: POLYARTHRITIS
     Dosage: 200 MG, 1X/DAY IN THE MORNING
     Route: 048
  2. CELEBREX [Suspect]
     Indication: POLYMYALGIA RHEUMATICA
  3. TREMARIT [Concomitant]
     Indication: FAMILIAL TREMOR
     Dosage: UNK
     Dates: end: 20091101

REACTIONS (4)
  - GASTRITIS [None]
  - PANCREATITIS NECROTISING [None]
  - PLEURAL EFFUSION [None]
  - PLEURISY [None]
